FAERS Safety Report 5157325-4 (Version None)
Quarter: 2006Q4

REPORT INFORMATION
  Report Type: 
  Country: None (occurrence: None)
  Receive Date: 20061127
  Receipt Date: 20061006
  Transmission Date: 20070319
  Serious: Yes (Death, Life-Threatening, Hospitalization)
  Sender: FDA-Public Use
  Company Number: PHHO2006DE16609

PATIENT
  Age: 61 Year
  Sex: Male
  Weight: 61 kg

DRUGS (7)
  1. METHOTREXATE [Suspect]
     Indication: ACUTE LYMPHOCYTIC LEUKAEMIA
     Route: 042
     Dates: start: 20061017
  2. ONCASPAR [Suspect]
     Indication: ACUTE LYMPHOCYTIC LEUKAEMIA
     Route: 042
     Dates: start: 20061018
  3. PURINETHOL [Suspect]
     Route: 048
     Dates: start: 20061017, end: 20061023
  4. LEUCOVORIN CALCIUM [Concomitant]
  5. LITAREX [Concomitant]
     Indication: ACUTE LYMPHOCYTIC LEUKAEMIA
  6. STI571 [Suspect]
     Indication: ACUTE LYMPHOCYTIC LEUKAEMIA
     Dosage: 600 MG, QD
     Route: 048
     Dates: start: 20060512, end: 20060622
  7. STI571 [Suspect]
     Dosage: 400 MG, QD
     Route: 048
     Dates: end: 20061022

REACTIONS (12)
  - ANAL HAEMORRHAGE [None]
  - ASCITES [None]
  - BLOOD PRESSURE DECREASED [None]
  - CONVULSION [None]
  - DIARRHOEA HAEMORRHAGIC [None]
  - ENTEROCOLITIS HAEMORRHAGIC [None]
  - GASTROINTESTINAL HAEMORRHAGE [None]
  - GENERALISED OEDEMA [None]
  - HAEMATEMESIS [None]
  - HAEMOGLOBIN DECREASED [None]
  - PANCYTOPENIA [None]
  - PLEURAL EFFUSION [None]
